FAERS Safety Report 19207984 (Version 1)
Quarter: 2021Q2

REPORT INFORMATION
  Report Type: Spontaneous
  Country: US (occurrence: US)
  Receive Date: 20210503
  Receipt Date: 20210503
  Transmission Date: 20210717
  Serious: No
  Sender: FDA-Public Use
  Company Number: US-ABBVIE-20K-163-3685988-00

PATIENT
  Sex: Female
  Weight: 59.02 kg

DRUGS (2)
  1. CREON [Suspect]
     Active Substance: PANCRELIPASE AMYLASE\PANCRELIPASE LIPASE\PANCRELIPASE PROTEASE
     Indication: PANCREATIC FAILURE
     Dosage: ONE 12,000 UNITS USP WITH MEALS AND ONE 12,000 UNITS USP WITH SNACKS
     Route: 048
     Dates: start: 2015, end: 202010
  2. CREON [Suspect]
     Active Substance: PANCRELIPASE AMYLASE\PANCRELIPASE LIPASE\PANCRELIPASE PROTEASE
     Dosage: TWO 12,000 UNITS USP WITH MEALS AND ONE 12,000 UNITS USP WITH SNACKS
     Route: 048
     Dates: start: 202010

REACTIONS (1)
  - Abdominal pain [Not Recovered/Not Resolved]

NARRATIVE: CASE EVENT DATE: 202010
